FAERS Safety Report 8266752 (Version 2)
Quarter: 2013Q4

REPORT INFORMATION
  Report Type: Spontaneous
  Country: US (occurrence: None)
  Receive Date: 20111121
  Receipt Date: 20131120
  Transmission Date: 20140711
  Serious: Yes (Other)
  Sender: FDA-Public Use
  Company Number: 2011029443

PATIENT
  Sex: Female
  Weight: 12.25 kg

DRUGS (3)
  1. BERINERT [Suspect]
     Indication: HEREDITARY ANGIOEDEMA
     Dosage: (10 ML, 500 UNITS;4 ML/MIN)
     Route: 042
     Dates: start: 2008
  2. AMOXCILLIN (AMOXICILLIN) [Concomitant]
  3. BENADRYL [Concomitant]

REACTIONS (3)
  - Unevaluable event [None]
  - Drug ineffective [None]
  - Headache [None]
